FAERS Safety Report 6909603-3 (Version None)
Quarter: 2010Q3

REPORT INFORMATION
  Report Type: 
  Country: None (occurrence: None)
  Receive Date: 20100805
  Receipt Date: 20100729
  Transmission Date: 20110219
  Serious: Yes (Hospitalization)
  Sender: FDA-Public Use
  Company Number: JP-ELI_LILLY_AND_COMPANY-JP201004001403

PATIENT
  Age: 60 Year
  Sex: Male
  Weight: 58.7 kg

DRUGS (5)
  1. ALIMTA [Suspect]
     Indication: NON-SMALL CELL LUNG CANCER
     Dosage: 500 MG/M2, OTHER
     Route: 042
     Dates: start: 20100316
  2. FOLIAMIN [Concomitant]
     Dosage: 0.5 MG, DAILY (1/D)
     Route: 048
     Dates: start: 20100309
  3. METHYCOBAL [Concomitant]
     Dosage: 1 MG, OTHER
     Route: 030
     Dates: start: 20100309
  4. ADALAT [Concomitant]
     Dosage: 10 MG, DAILY (1/D)
  5. DEPAKENE [Concomitant]
     Dosage: 200 MG, DAILY (1/D)

REACTIONS (1)
  - HEPATIC FUNCTION ABNORMAL [None]
